FAERS Safety Report 24783814 (Version 1)
Quarter: 2024Q4

REPORT INFORMATION
  Report Type: Spontaneous
  Country: IN (occurrence: IN)
  Receive Date: 20241227
  Receipt Date: 20241227
  Transmission Date: 20250115
  Serious: Yes (Hospitalization, Other)
  Sender: TORRENT PHARMA INC.
  Company Number: IN-TORRENT-00003781

PATIENT
  Age: 28 Year
  Sex: Male

DRUGS (2)
  1. CARBAMAZEPINE [Suspect]
     Active Substance: CARBAMAZEPINE
     Indication: Generalised tonic-clonic seizure
     Dosage: OVERDOSE OF FIVE STRIPS OF CARBAMAZEPINE 200 MG TABLETS
     Route: 065
  2. VALPROATE SODIUM [Concomitant]
     Active Substance: VALPROATE SODIUM
     Indication: Generalised tonic-clonic seizure
     Dosage: UNKNOWN
     Route: 065

REACTIONS (5)
  - Toxicity to various agents [Unknown]
  - Status epilepticus [Recovered/Resolved]
  - Overdose [Unknown]
  - Suicide attempt [Unknown]
  - Treatment noncompliance [Unknown]
